FAERS Safety Report 4305583-8 (Version None)
Quarter: 2004Q1

REPORT INFORMATION
  Report Type: 
  Country: None (occurrence: None)
  Receive Date: 20040226
  Receipt Date: 20031205
  Transmission Date: 20041129
  Serious: No
  Sender: FDA-Public Use
  Company Number: US-BRISTOL-MYERS SQUIBB COMPANY-12450938

PATIENT
  Age: 44 Year
  Sex: Male
  Weight: 85 kg

DRUGS (4)
  1. ABILIFY [Suspect]
     Indication: SCHIZOPHRENIA
     Dosage: PART OF A 15 MG TABLET
     Route: 048
     Dates: start: 20031101
  2. LEVOXYL [Concomitant]
  3. PRAVACHOL [Concomitant]
  4. TRAZODONE HCL [Concomitant]

REACTIONS (1)
  - INSOMNIA [None]
